FAERS Safety Report 5074986-9 (Version None)
Quarter: 2006Q3

REPORT INFORMATION
  Report Type: 
  Country: None (occurrence: None)
  Receive Date: 20060717
  Receipt Date: 20060118
  Transmission Date: 20061208
  Serious: No
  Sender: FDA-Public Use
  Company Number: 2006000166

PATIENT
  Age: 62 Year
  Sex: Male
  Weight: 70.7611 kg

DRUGS (6)
  1. TARCEVA [Suspect]
     Indication: GALLBLADDER CANCER
     Dosage: 100 MG (QD), ORAL
     Route: 048
  2. TARCEVA [Suspect]
     Indication: PANCREATIC CARCINOMA
     Dosage: 100 MG (QD), ORAL
     Route: 048
  3. PRECOSE [Concomitant]
  4. GEMCITABINE [Concomitant]
  5. PRANDIN (DEFLAZOCORT) [Concomitant]
  6. GLUCOPHAGE [Concomitant]

REACTIONS (2)
  - BLOOD GLUCOSE INCREASED [None]
  - RASH [None]
